FAERS Safety Report 18776642 (Version 1)
Quarter: 2021Q1

REPORT INFORMATION
  Report Type: Spontaneous
  Country: HR (occurrence: HR)
  Receive Date: 20210122
  Receipt Date: 20210122
  Transmission Date: 20210419
  Serious: Yes (Hospitalization, Other)
  Sender: FDA-Public Use
  Company Number: NVSC2021HR010815

PATIENT
  Age: 49 Year

DRUGS (2)
  1. ENTRESTO [Suspect]
     Active Substance: SACUBITRIL\VALSARTAN
     Indication: PRODUCT USED FOR UNKNOWN INDICATION
     Dosage: 2 DF (49/51 MG), QD
     Route: 065
  2. ENTRESTO [Suspect]
     Active Substance: SACUBITRIL\VALSARTAN
     Dosage: 2 DF (97/103 MG), QD (2 WEEKS AFTER DISCHARGE MAXIMUM DOSE ENTRESO)
     Route: 065

REACTIONS (6)
  - Cardiac failure chronic [Unknown]
  - Blood pressure increased [Unknown]
  - Ejection fraction decreased [Unknown]
  - Orthopnoea [Unknown]
  - Nocturnal dyspnoea [Unknown]
  - Dyspnoea [Unknown]
